FAERS Safety Report 19466000 (Version 2)
Quarter: 2021Q2

REPORT INFORMATION
  Report Type: Report from Study
  Country: US (occurrence: US)
  Receive Date: 20210626
  Receipt Date: 20210626
  Transmission Date: 20210717
  Serious: No
  Sender: FDA-Public Use
  Company Number: NVSC2021US133725

PATIENT
  Age: 56 Year
  Sex: Female

DRUGS (1)
  1. ENTRESTO [Suspect]
     Active Substance: SACUBITRIL\VALSARTAN
     Indication: PRODUCT USED FOR UNKNOWN INDICATION
     Dosage: 1 DF, BID (97/103 MG)
     Route: 048

REACTIONS (5)
  - Malaise [Unknown]
  - Fatigue [Unknown]
  - Heart rate decreased [Recovered/Resolved]
  - Product dose omission issue [Unknown]
  - Chest discomfort [Unknown]

NARRATIVE: CASE EVENT DATE: 20210606
